FAERS Safety Report 7085120-8 (Version None)
Quarter: 2010Q4

REPORT INFORMATION
  Report Type: 
  Country: None (occurrence: None)
  Receive Date: 20101027
  Receipt Date: 20101015
  Transmission Date: 20110411
  Serious: Yes (Hospitalization)
  Sender: FDA-Public Use
  Company Number: 2010JP005201

PATIENT
  Age: 73 Year
  Sex: Male
  Weight: 67 kg

DRUGS (13)
  1. ALOXI [Suspect]
     Indication: PROPHYLAXIS OF NAUSEA AND VOMITING
     Dosage: 0.75 MG, SINGLE, INTRAVENOUS
     Route: 042
     Dates: start: 20100902, end: 20100902
  2. TS 1 (GIMERACIL, OTERACIL POTASSIUM, TEGAFUR) [Suspect]
     Indication: METASTATIC GASTRIC CANCER
     Dosage: 50 MG, BID, ORAL, 50 MG, BID, ORAL
     Route: 048
     Dates: start: 20100826, end: 20100906
  3. TS 1 (GIMERACIL, OTERACIL POTASSIUM, TEGAFUR) [Suspect]
     Indication: METASTATIC GASTRIC CANCER
     Dosage: 50 MG, BID, ORAL, 50 MG, BID, ORAL
     Route: 048
     Dates: start: 20100617
  4. RANDA (CISPLATINZ0 [Suspect]
     Indication: METASTATIC GASTRIC CANCER
     Dosage: 100 MG, IV DRIP, 100 MG, QD, IV DRIP
     Route: 041
     Dates: start: 20100625, end: 20100625
  5. RANDA (CISPLATINZ0 [Suspect]
     Indication: METASTATIC GASTRIC CANCER
     Dosage: 100 MG, IV DRIP, 100 MG, QD, IV DRIP
     Route: 041
     Dates: start: 20100902, end: 20100902
  6. EMEND [Suspect]
     Indication: PROPHYLAXIS OF NAUSEA AND VOMITING
     Dosage: 120 MG, ORAL
     Route: 048
     Dates: start: 20100902, end: 20100904
  7. ANTIHYPERTENSIVES [Concomitant]
  8. PRIMPERAN ELIXIR [Concomitant]
  9. KYTRIL [Concomitant]
  10. DECADRON (DEXAMETHASONE TEBUTATE) [Concomitant]
  11. MICARDIS [Concomitant]
  12. KERLONE [Concomitant]
  13. AMLODIPINE BESYLATE [Concomitant]

REACTIONS (10)
  - BILIRUBIN CONJUGATED INCREASED [None]
  - BLOOD ALBUMIN DECREASED [None]
  - BLOOD ALKALINE PHOSPHATASE INCREASED [None]
  - BLOOD LACTATE DEHYDROGENASE INCREASED [None]
  - BLOOD PRESSURE DECREASED [None]
  - BLOOD UREA INCREASED [None]
  - CARDIAC FAILURE CONGESTIVE [None]
  - HAEMOGLOBIN DECREASED [None]
  - PULMONARY OEDEMA [None]
  - TRANSAMINASES INCREASED [None]
